FAERS Safety Report 19122174 (Version 3)
Quarter: 2021Q2

REPORT INFORMATION
  Report Type: Spontaneous
  Country: US (occurrence: US)
  Receive Date: 20210412
  Receipt Date: 20210528
  Transmission Date: 20210717
  Serious: Yes (Other)
  Sender: FDA-Public Use
  Company Number: US-BEH-2021130189

PATIENT
  Age: 19 Year
  Sex: Male

DRUGS (8)
  1. HUMATE?P [Suspect]
     Active Substance: HUMAN COAGULATION FACTOR VIII/VON WILLEBRAND FACTOR COMPLEX
     Indication: FACTOR VIII DEFICIENCY
     Dosage: 2500 F8 UNITS (2250?2750) DAILY FOR MINOR BLEEDS
     Route: 042
     Dates: start: 201312
  2. HUMATE?P [Suspect]
     Active Substance: HUMAN COAGULATION FACTOR VIII/VON WILLEBRAND FACTOR COMPLEX
     Dosage: 5000 INTERNATIONAL UNIT, 3XWEEK
     Route: 042
     Dates: start: 201512
  3. HUMATE?P [Suspect]
     Active Substance: HUMAN COAGULATION FACTOR VIII/VON WILLEBRAND FACTOR COMPLEX
     Dosage: 4000 F8 UNITS (3600?4400), SINGLE, PRN FOR MAJOR BLEED
     Route: 042
     Dates: start: 201312
  4. HUMATE?P [Suspect]
     Active Substance: HUMAN COAGULATION FACTOR VIII/VON WILLEBRAND FACTOR COMPLEX
     Indication: FACTOR VIII DEFICIENCY
     Dosage: 2500 F8 UNITS (2250?2750), TIW
     Route: 042
     Dates: start: 201312
  5. HUMATE?P [Suspect]
     Active Substance: HUMAN COAGULATION FACTOR VIII/VON WILLEBRAND FACTOR COMPLEX
     Indication: FACTOR VIII DEFICIENCY
     Dosage: 2500 F8 UNITS (2250?2750), TIW
     Route: 042
     Dates: start: 201312
  6. HUMATE?P [Suspect]
     Active Substance: HUMAN COAGULATION FACTOR VIII/VON WILLEBRAND FACTOR COMPLEX
     Indication: FACTOR VIII DEFICIENCY
     Dosage: 2500 F8 UNITS (2250?2750) DAILY FOR MINOR BLEEDS
     Route: 042
     Dates: start: 201312
  7. HUMATE?P [Suspect]
     Active Substance: HUMAN COAGULATION FACTOR VIII/VON WILLEBRAND FACTOR COMPLEX
     Dosage: 5000 INTERNATIONAL UNIT, 3XWEEK
     Route: 042
     Dates: start: 201512
  8. HUMATE?P [Suspect]
     Active Substance: HUMAN COAGULATION FACTOR VIII/VON WILLEBRAND FACTOR COMPLEX
     Dosage: 4000 F8 UNITS (3600?4400), SINGLE, PRN FOR MAJOR BLEED
     Route: 042
     Dates: start: 201312

REACTIONS (3)
  - Haematoma [Unknown]
  - Haemorrhage [Unknown]
  - Haemorrhage [Unknown]

NARRATIVE: CASE EVENT DATE: 202104
